FAERS Safety Report 7199997-9 (Version None)
Quarter: 2010Q4

REPORT INFORMATION
  Report Type: 
  Country: None (occurrence: None)
  Receive Date: 20101228
  Receipt Date: 20101213
  Transmission Date: 20110411
  Serious: Yes (Other)
  Sender: FDA-Public Use
  Company Number: GXKR2010SI14141

PATIENT
  Sex: Female

DRUGS (3)
  1. FLURAZEPAM [Suspect]
     Route: 065
  2. FLUPHENAZINE [Interacting]
     Route: 065
  3. SERTRALINE HYDROCHLORIDE [Interacting]
     Route: 065

REACTIONS (4)
  - DRUG INTERACTION [None]
  - RESTLESSNESS [None]
  - SEROTONIN SYNDROME [None]
  - TREMOR [None]
